FAERS Safety Report 17556838 (Version 1)
Quarter: 2020Q1

REPORT INFORMATION
  Report Type: Spontaneous
  Country: US (occurrence: US)
  Receive Date: 20200318
  Receipt Date: 20200318
  Transmission Date: 20200409
  Serious: Yes (Other)
  Sender: FDA-Public Use
  Company Number: US-PFIZER INC-2020115031

PATIENT
  Age: 78 Year
  Sex: Female

DRUGS (4)
  1. XELJANZ XR [Suspect]
     Active Substance: TOFACITINIB CITRATE
     Indication: RHEUMATOID ARTHRITIS
     Dosage: 11 MG, 1X/DAY[11MG TABLET, 1 TABLET A DAY BY MOUTH]
     Route: 048
     Dates: start: 201704
  2. XELJANZ [Suspect]
     Active Substance: TOFACITINIB CITRATE
     Indication: RHEUMATOID ARTHRITIS
     Dosage: 5 MG, 2X/DAY [5MG TABLET, 1 TABLET TWICE A DAY BY MOUTH, ONE IN THE MORNING AND ONE IN THE EVENING]
     Route: 048
  3. XELJANZ [Suspect]
     Active Substance: TOFACITINIB CITRATE
     Dosage: UNK, 1X/DAY [2-5MG PILLS A DAY]
  4. PRAVASTATIN. [Concomitant]
     Active Substance: PRAVASTATIN
     Indication: BLOOD CHOLESTEROL ABNORMAL
     Dosage: UNK

REACTIONS (5)
  - Retinal disorder [Unknown]
  - Cataract [Unknown]
  - Product prescribing issue [Unknown]
  - Glaucoma [Unknown]
  - Blindness [Unknown]
